FAERS Safety Report 14371892 (Version 1)
Quarter: 2018Q1

REPORT INFORMATION
  Report Type: Spontaneous
  Country: DE (occurrence: DE)
  Receive Date: 20180110
  Receipt Date: 20180110
  Transmission Date: 20180509
  Serious: Yes (Hospitalization)
  Sender: FDA-Public Use
  Company Number: DE-PFIZER INC-2018006150

PATIENT
  Age: 39 Year
  Sex: Female

DRUGS (1)
  1. LANTAREL [Suspect]
     Active Substance: METHOTREXATE SODIUM
     Dosage: 5 MG, 1X / WEEK ; FOR PAST 3 YEARS

REACTIONS (3)
  - Nausea [Unknown]
  - Dizziness [Unknown]
  - Dysstasia [Unknown]
